FAERS Safety Report 12899393 (Version 1)
Quarter: 2016Q4

REPORT INFORMATION
  Report Type: Spontaneous
  Country: KR (occurrence: KR)
  Receive Date: 20161101
  Receipt Date: 20161101
  Transmission Date: 20170207
  Serious: Yes (Hospitalization)
  Sender: FDA-Public Use
  Company Number: KR-STRIDES ARCOLAB LIMITED-2016SP016675

PATIENT

DRUGS (2)
  1. IBUPROFEN. [Suspect]
     Active Substance: IBUPROFEN
     Indication: PYREXIA
     Dosage: 10 MG/KG, SINGLE
  2. IBUPROFEN. [Suspect]
     Active Substance: IBUPROFEN
     Dosage: CONVENTIONAL PEDIATRIC DOSES (MAXIMUM OF 30 MG/KG/DAY)

REACTIONS (7)
  - Cholestasis [Recovered/Resolved]
  - Vanishing bile duct syndrome [Recovered/Resolved]
  - Rash erythematous [Recovered/Resolved]
  - Pyrexia [Recovered/Resolved]
  - Rash macular [Recovered/Resolved]
  - Blister [Recovered/Resolved]
  - Toxic epidermal necrolysis [Recovered/Resolved]
